FAERS Safety Report 21466157 (Version 1)
Quarter: 2022Q4

REPORT INFORMATION
  Report Type: Spontaneous
  Country: US (occurrence: None)
  Receive Date: 20221014
  Receipt Date: 20221014
  Transmission Date: 20230112
  Serious: Yes (Hospitalization)
  Sender: FDA-Public Use
  Company Number: None

PATIENT
  Age: 89 Year
  Sex: Female
  Weight: 79.2 kg

DRUGS (1)
  1. FINERENONE [Suspect]
     Active Substance: FINERENONE
     Dosage: FREQUENCY : DAILY;?
     Route: 048
     Dates: start: 20220126

REACTIONS (2)
  - Hypotension [None]
  - Hyponatraemia [None]

NARRATIVE: CASE EVENT DATE: 20221014
